FAERS Safety Report 17589341 (Version 2)
Quarter: 2021Q2

REPORT INFORMATION
  Report Type: Spontaneous
  Country: US (occurrence: US)
  Receive Date: 20200327
  Receipt Date: 20210413
  Transmission Date: 20210716
  Serious: No
  Sender: FDA-Public Use
  Company Number: US-ALLERGAN-1933192US

PATIENT
  Sex: Female

DRUGS (2)
  1. UNSPECIFIED LUBRICANT EYE DROPS [Concomitant]
     Indication: DRY EYE
     Dosage: UNK
     Route: 047
  2. LATISSE [Suspect]
     Active Substance: BIMATOPROST
     Indication: GROWTH OF EYELASHES
     Dosage: 2 GTT, QHS
     Route: 047

REACTIONS (5)
  - Wrong technique in product usage process [Unknown]
  - Eyelid irritation [Not Recovered/Not Resolved]
  - Madarosis [Not Recovered/Not Resolved]
  - Inappropriate schedule of product administration [Unknown]
  - Therapeutic product effect decreased [Unknown]
